FAERS Safety Report 17978672 (Version 3)
Quarter: 2020Q3

REPORT INFORMATION
  Report Type: Spontaneous
  Country: SE (occurrence: SE)
  Receive Date: 20200703
  Receipt Date: 20200713
  Transmission Date: 20201103
  Serious: Yes (Other)
  Sender: FDA-Public Use
  Company Number: SE-ABBVIE-20K-150-3468478-00

PATIENT
  Sex: Male

DRUGS (1)
  1. HUMIRA [Suspect]
     Active Substance: ADALIMUMAB
     Indication: CROHN^S DISEASE
     Route: 058

REACTIONS (11)
  - Gait inability [Unknown]
  - Gastrointestinal disorder [Unknown]
  - Wrong technique in product usage process [Unknown]
  - Prostatic disorder [Unknown]
  - Electrocardiogram abnormal [Unknown]
  - Prostate cancer [Unknown]
  - Gait disturbance [Unknown]
  - Dizziness [Unknown]
  - Balance disorder [Unknown]
  - Dyspnoea [Unknown]
  - Cardiac disorder [Unknown]

NARRATIVE: CASE EVENT DATE: 2018
